FAERS Safety Report 21592011 (Version 1)
Quarter: 2022Q4

REPORT INFORMATION
  Report Type: Spontaneous
  Country: US (occurrence: None)
  Receive Date: 20221112
  Receipt Date: 20221112
  Transmission Date: 20230113
  Serious: Yes (Disabling)
  Sender: FDA-Public Use
  Company Number: None

PATIENT
  Age: 39 Year
  Sex: Female
  Weight: 54 kg

DRUGS (7)
  1. BOTOX [Suspect]
     Active Substance: ONABOTULINUMTOXINA
     Indication: Skin cosmetic procedure
     Route: 058
     Dates: start: 20220811, end: 20220811
  2. LEVOTHYROXINE [Concomitant]
     Active Substance: LEVOTHYROXINE
  3. SERTRALINE [Concomitant]
     Active Substance: SERTRALINE HYDROCHLORIDE
  4. collagen supplements [Concomitant]
  5. VITAMIN D [Concomitant]
     Active Substance: VITAMIN D NOS
  6. VITAMIN K [Concomitant]
     Active Substance: PHYTONADIONE
  7. FISH OIL [Concomitant]

REACTIONS (9)
  - Palpitations [None]
  - Dizziness [None]
  - Muscular weakness [None]
  - Discomfort [None]
  - Eyelid disorder [None]
  - Fatigue [None]
  - Paraesthesia [None]
  - Fear [None]
  - Panic reaction [None]

NARRATIVE: CASE EVENT DATE: 20221009
